FAERS Safety Report 17705408 (Version 5)
Quarter: 2020Q2

REPORT INFORMATION
  Report Type: Spontaneous
  Country: DE (occurrence: DE)
  Receive Date: 20200424
  Receipt Date: 20200526
  Transmission Date: 20200714
  Serious: Yes (Hospitalization, Other)
  Sender: FDA-Public Use
  Company Number: DE-PFIZER INC-2020165611

PATIENT
  Age: 45 Year
  Sex: Female
  Weight: 92 kg

DRUGS (17)
  1. PREDNISONE. [Suspect]
     Active Substance: PREDNISONE
     Dosage: 5 MG, 1X/DAY
     Route: 048
     Dates: start: 201811, end: 201811
  2. METOPROLOL. [Concomitant]
     Active Substance: METOPROLOL
     Indication: HYPERTENSION
     Dosage: UNK
  3. AMLODIPINE [Concomitant]
     Active Substance: AMLODIPINE BESYLATE
     Indication: HYPERTENSION
     Dosage: UNK
  4. METHOTREXATE SODIUM. [Suspect]
     Active Substance: METHOTREXATE SODIUM
     Dosage: 15 MG, WEEKLY
     Route: 058
     Dates: start: 201606, end: 201710
  5. PREDNISONE. [Suspect]
     Active Substance: PREDNISONE
     Dosage: 4 MG, 1X/DAY
     Route: 048
     Dates: start: 201609, end: 201811
  6. PREDNISOLONE. [Suspect]
     Active Substance: PREDNISOLONE
     Indication: RHEUMATOID ARTHRITIS
     Dosage: UNK(INTERMITTENT USAGE OF LOW-DOSE PREDNISOLONE)
  7. PREDNISOLONE. [Suspect]
     Active Substance: PREDNISOLONE
     Dosage: 20 MG
  8. SULFASALAZINE. [Suspect]
     Active Substance: SULFASALAZINE
     Dosage: 2 DF, 2X/DAY
     Route: 048
     Dates: start: 201710, end: 201712
  9. LEFLUNOMIDE. [Suspect]
     Active Substance: LEFLUNOMIDE
     Indication: RHEUMATOID ARTHRITIS
     Dosage: 10 MG, 1X/DAY
     Route: 048
     Dates: start: 201704, end: 201911
  10. PREDNISONE. [Suspect]
     Active Substance: PREDNISONE
     Indication: RHEUMATOID ARTHRITIS
     Dosage: 40 MG, 1X/DAY
     Route: 048
     Dates: start: 201811, end: 201811
  11. PREDNISONE. [Suspect]
     Active Substance: PREDNISONE
     Dosage: 20 MG, 1X/DAY
     Route: 048
     Dates: start: 201811, end: 201811
  12. PREDNISONE. [Suspect]
     Active Substance: PREDNISONE
     Dosage: 30 MG, 1X/DAY
     Route: 048
     Dates: start: 201811, end: 201811
  13. PREDNISONE. [Suspect]
     Active Substance: PREDNISONE
     Dosage: 20 MG, 1X/DAY(TWO WEEKS BEFORE PRESENTATION)
     Route: 048
     Dates: start: 2018, end: 2018
  14. PREDNISONE. [Suspect]
     Active Substance: PREDNISONE
     Dosage: 15 MG, 1X/DAY
     Route: 048
     Dates: start: 201811, end: 201811
  15. PREDNISONE. [Suspect]
     Active Substance: PREDNISONE
     Dosage: 7.5 MG, 1X/DAY
     Route: 048
     Dates: start: 201811, end: 201811
  16. PREDNISONE. [Suspect]
     Active Substance: PREDNISONE
     Dosage: 10 MG, 1X/DAY
     Route: 048
     Dates: start: 201811, end: 201811
  17. HYDROXYCHLOROQUINE [Suspect]
     Active Substance: HYDROXYCHLOROQUINE
     Indication: RHEUMATOID ARTHRITIS
     Dosage: 200 MG, 2X/DAY
     Route: 048
     Dates: start: 201804, end: 201810

REACTIONS (3)
  - Mycobacterium marinum infection [Recovering/Resolving]
  - Granuloma [Recovering/Resolving]
  - Infective tenosynovitis [Recovering/Resolving]

NARRATIVE: CASE EVENT DATE: 201809
